FAERS Safety Report 10522353 (Version 2)
Quarter: 2014Q4

REPORT INFORMATION
  Report Type: Report from Study
  Country: JP (occurrence: JP)
  Receive Date: 20141016
  Receipt Date: 20141016
  Transmission Date: 20150528
  Serious: Yes (Death, Hospitalization)
  Sender: FDA-Public Use
  Company Number: JP-ELI_LILLY_AND_COMPANY-JP201409005425

PATIENT
  Age: 72 Year
  Sex: Male
  Weight: 57 kg

DRUGS (15)
  1. PEMETREXED [Suspect]
     Active Substance: PEMETREXED
     Indication: LUNG ADENOCARCINOMA STAGE III
     Dosage: 805 MG, 21-DAY-CYCLE
     Route: 042
     Dates: start: 20140304, end: 20140507
  2. EMEND [Concomitant]
     Active Substance: APREPITANT
     Dosage: 80 MG, QD
     Route: 048
     Dates: start: 20140508, end: 20140509
  3. AMLODIPINE BESILATE [Concomitant]
     Active Substance: AMLODIPINE BESYLATE
     Indication: PRODUCT USED FOR UNKNOWN INDICATION
     Dosage: 5 MG, QD
     Route: 048
  4. ALOXI [Concomitant]
     Active Substance: PALONOSETRON HYDROCHLORIDE
     Indication: PROPHYLAXIS OF NAUSEA AND VOMITING
     Dosage: 0.75 MG, QD
     Route: 042
     Dates: start: 20140304, end: 20140507
  5. ALLOPURINOL. [Concomitant]
     Active Substance: ALLOPURINOL
     Indication: PRODUCT USED FOR UNKNOWN INDICATION
     Dosage: 100 MG, QD
     Route: 048
  6. DECADRON                           /00016002/ [Concomitant]
     Active Substance: DEXAMETHASONE
     Indication: PROPHYLAXIS OF NAUSEA AND VOMITING
     Dosage: 1.65 MG, QD
     Route: 042
     Dates: start: 20140304, end: 20140507
  7. LASIX [Concomitant]
     Active Substance: FUROSEMIDE
     Indication: POLYURIA
     Dosage: 20 MG, QD
     Route: 042
     Dates: start: 20140304, end: 20140507
  8. EMEND [Concomitant]
     Active Substance: APREPITANT
     Indication: PROPHYLAXIS OF NAUSEA AND VOMITING
     Dosage: 125 MG, QD
     Route: 048
     Dates: start: 20140304, end: 20140304
  9. FAMOTIDINE. [Concomitant]
     Active Substance: FAMOTIDINE
     Indication: PRODUCT USED FOR UNKNOWN INDICATION
     Dosage: 40 MG, BID
     Route: 048
  10. PANVITAN                           /00466101/ [Concomitant]
     Indication: PROPHYLAXIS
     Dosage: 1 G, QD
     Route: 048
     Dates: start: 20140225, end: 20140607
  11. METHYCOBAL [Concomitant]
     Active Substance: METHYLCOBALAMIN
     Dosage: 1 MG, OTHER
     Route: 030
     Dates: start: 20140506
  12. CISPLATIN. [Suspect]
     Active Substance: CISPLATIN
     Indication: LUNG ADENOCARCINOMA STAGE III
     Dosage: 120 MG, 21-DAY-CYCLE
     Route: 042
     Dates: start: 20140304, end: 20140507
  13. EMEND [Concomitant]
     Active Substance: APREPITANT
     Dosage: 205 MG, QD
     Route: 048
     Dates: start: 20140305, end: 20140507
  14. METHYCOBAL [Concomitant]
     Active Substance: METHYLCOBALAMIN
     Indication: PROPHYLAXIS
     Dosage: 1 MG, OTHER
     Route: 030
     Dates: start: 20140225
  15. MANNITOL. [Concomitant]
     Active Substance: MANNITOL
     Indication: POLYURIA
     Dosage: 300 ML, QD
     Route: 042
     Dates: start: 20140304, end: 20140507

REACTIONS (1)
  - Interstitial lung disease [Fatal]

NARRATIVE: CASE EVENT DATE: 20140615
